FAERS Safety Report 10084118 (Version 2)
Quarter: 2014Q2

REPORT INFORMATION
  Report Type: Spontaneous
  Country: TR (occurrence: TR)
  Receive Date: 20140417
  Receipt Date: 20140425
  Transmission Date: 20141212
  Serious: Yes (Hospitalization)
  Sender: FDA-Public Use
  Company Number: TR-NOVOPROD-406426

PATIENT
  Age: 12 Year
  Sex: Female
  Weight: 49 kg

DRUGS (2)
  1. NORDITROPIN SIMPLEXX [Suspect]
     Indication: GROWTH HORMONE DEFICIENCY
     Dosage: UNK
     Route: 065
     Dates: start: 20131011, end: 20131210
  2. EUTHYROX [Concomitant]
     Indication: HYPOTHYROIDISM
     Dosage: SINCE 2-3 YEARS
     Route: 065

REACTIONS (3)
  - Liver disorder [Recovered/Resolved]
  - Nausea [Recovered/Resolved]
  - Abdominal pain [Recovered/Resolved]
